FAERS Safety Report 18598410 (Version 4)
Quarter: 2021Q2

REPORT INFORMATION
  Report Type: Spontaneous
  Country: PL (occurrence: PL)
  Receive Date: 20201210
  Receipt Date: 20210521
  Transmission Date: 20210717
  Serious: Yes (Other)
  Sender: FDA-Public Use
  Company Number: PL-ROCHE-2725633

PATIENT
  Age: 57 Year
  Sex: Female

DRUGS (5)
  1. PERTUZUMAB. [Suspect]
     Active Substance: PERTUZUMAB
     Indication: HER2 POSITIVE BREAST CANCER
     Dosage: DRUG DOSAGE: STANDARD
     Route: 065
     Dates: start: 201903, end: 201907
  2. PERTUZUMAB. [Suspect]
     Active Substance: PERTUZUMAB
     Dosage: DRUG DOSAGE: STANDARD
     Route: 065
     Dates: start: 201907, end: 202005
  3. TRASTUZUMAB. [Suspect]
     Active Substance: TRASTUZUMAB
     Indication: HER2 POSITIVE BREAST CANCER
     Dosage: ON MAR/2091 AND JUL/2019, SHE WAS ADMINISTERED TRASTUZUMAB WITH UNKNOWN ROUTE OF ADMINISTRATION.
     Route: 058
     Dates: start: 201609, end: 201708
  4. KADCYLA [Suspect]
     Active Substance: ADO-TRASTUZUMAB EMTANSINE
     Indication: HER2 POSITIVE BREAST CANCER
     Dosage: RECEIVED SO FAR 9 COURSES
     Route: 042
     Dates: start: 202006, end: 202011
  5. DOCETAXEL. [Suspect]
     Active Substance: DOCETAXEL
     Indication: HER2 POSITIVE BREAST CANCER
     Route: 065
     Dates: start: 201903, end: 201907

REACTIONS (6)
  - Ventricular hypokinesia [Recovered/Resolved]
  - Ejection fraction decreased [Recovered/Resolved]
  - Therapy partial responder [Unknown]
  - Metastases to central nervous system [Unknown]
  - Diarrhoea [Not Recovered/Not Resolved]
  - Breast cancer recurrent [Unknown]

NARRATIVE: CASE EVENT DATE: 201901
